FAERS Safety Report 8225318-6 (Version None)
Quarter: 2012Q1

REPORT INFORMATION
  Report Type: 
  Country: None (occurrence: None)
  Receive Date: 20120321
  Receipt Date: 20120312
  Transmission Date: 20120608
  Serious: Yes (Other)
  Sender: FDA-Public Use
  Company Number: US-GLAXOSMITHKLINE-A0969322A

PATIENT
  Age: 16 Year
  Sex: Female

DRUGS (4)
  1. LAMICTAL [Suspect]
     Indication: EPILEPSY
     Dosage: 400MG TWICE PER DAY
     Route: 048
     Dates: start: 20020101
  2. FOLIC ACID [Concomitant]
  3. FOCALIN [Concomitant]
  4. ZONEGRAN [Concomitant]

REACTIONS (7)
  - BLINDNESS [None]
  - VOMITING [None]
  - LETHARGY [None]
  - NAUSEA [None]
  - PERFORMANCE STATUS DECREASED [None]
  - EYE MOVEMENT DISORDER [None]
  - DEHYDRATION [None]
